FAERS Safety Report 6279678-6 (Version None)
Quarter: 2009Q3

REPORT INFORMATION
  Report Type: 
  Country: None (occurrence: None)
  Receive Date: 20090723
  Receipt Date: 20090716
  Transmission Date: 20100115
  Serious: Yes (Hospitalization)
  Sender: FDA-Public Use
  Company Number: JP-MERCK-0905USA03980

PATIENT
  Age: 92 Year
  Sex: Female
  Weight: 52 kg

DRUGS (16)
  1. HYZAAR [Suspect]
     Indication: HYPERTENSION
     Route: 048
     Dates: start: 20090314, end: 20090511
  2. LASIX [Suspect]
     Indication: OEDEMA
     Route: 048
     Dates: start: 20081108, end: 20090511
  3. SHAKUYAKU-KANZO-TO [Suspect]
     Indication: MUSCLE SPASMS
     Route: 048
     Dates: start: 20050928, end: 20090511
  4. AMARYL [Concomitant]
     Indication: DIABETES MELLITUS
     Route: 048
     Dates: start: 20051005
  5. NORVASC [Concomitant]
     Indication: HYPERTENSION
     Route: 048
     Dates: start: 20051005
  6. MEVALOTIN [Concomitant]
     Indication: HYPERLIPIDAEMIA
     Route: 048
     Dates: start: 20051005
  7. ASPIRIN [Concomitant]
     Indication: CEREBRAL INFARCTION
     Route: 048
     Dates: start: 20061222
  8. PARIET [Concomitant]
     Indication: DUODENAL ULCER
     Route: 048
     Dates: start: 20051228
  9. LOXONIN [Concomitant]
     Indication: RIB FRACTURE
     Route: 048
     Dates: start: 20090330, end: 20090511
  10. LOXONIN [Concomitant]
     Indication: BACK PAIN
     Route: 048
     Dates: start: 20090330, end: 20090511
  11. MUCOSTA [Concomitant]
     Indication: RIB FRACTURE
     Route: 065
     Dates: start: 20090330, end: 20090511
  12. MUCOSTA [Concomitant]
     Indication: BACK PAIN
     Route: 065
     Dates: start: 20090330, end: 20090511
  13. CYANOCOBALAMIN [Concomitant]
     Indication: RIB FRACTURE
     Route: 048
     Dates: start: 20090401, end: 20090511
  14. CYANOCOBALAMIN [Concomitant]
     Indication: BACK PAIN
     Route: 048
     Dates: start: 20090401, end: 20090511
  15. NOVOLIN N [Concomitant]
     Indication: DIABETES MELLITUS
     Route: 058
     Dates: start: 20051005
  16. NOVOLIN N [Concomitant]
     Route: 058
     Dates: start: 20051005

REACTIONS (2)
  - HYPOKALAEMIA [None]
  - METABOLIC ALKALOSIS [None]
